FAERS Safety Report 6976053-3 (Version None)
Quarter: 2010Q3

REPORT INFORMATION
  Report Type: 
  Country: None (occurrence: None)
  Receive Date: 20100910
  Receipt Date: 20100903
  Transmission Date: 20110219
  Serious: Yes (Life-Threatening, Hospitalization)
  Sender: FDA-Public Use
  Company Number: DE-PFIZER INC-2010011770

PATIENT
  Age: 69 Year
  Sex: Male

DRUGS (12)
  1. CEFPODOXIME PROXETIL [Suspect]
     Indication: RESPIRATORY TRACT INFECTION
     Dosage: UNK
  2. KEIMAX [Suspect]
     Indication: RESPIRATORY TRACT INFECTION
     Dosage: 400 MG, 1X/DAY
     Route: 048
     Dates: start: 20091106, end: 20091115
  3. REVLIMID [Suspect]
     Indication: MULTIPLE MYELOMA
     Dosage: 25MG/DAY 1-21 OUT OF 28 DAYS
     Route: 048
     Dates: start: 20090718, end: 20091222
  4. DEXAMETHASONE [Suspect]
     Indication: MULTIPLE MYELOMA
     Dosage: 4 MG, 3 IN 1 MONTH
     Route: 048
     Dates: start: 20091219, end: 20091220
  5. TAMSULOSIN [Concomitant]
     Indication: BENIGN PROSTATIC HYPERPLASIA
     Dosage: 0.4 MG, 1X/DAY
     Route: 048
  6. ASPIRIN [Concomitant]
     Indication: CORONARY ARTERY DISEASE
     Dosage: 100 MG, 1X/DAY
     Route: 048
  7. RED BLOOD CELLS, CONCENTRATED [Concomitant]
     Indication: PRODUCT USED FOR UNKNOWN INDICATION
     Route: 042
  8. FORADIL [Concomitant]
     Indication: CHRONIC OBSTRUCTIVE PULMONARY DISEASE
     Dosage: 2 DF, 2X/DAY
  9. NEXIUM [Concomitant]
     Indication: PROPHYLAXIS
     Dosage: 20 MG, 1X/DAY
     Route: 048
  10. SIMVASTATIN [Concomitant]
     Indication: HYPERCHOLESTEROLAEMIA
     Dosage: 20 MG, 1X/DAY
     Route: 048
  11. VITAMINS [Concomitant]
     Indication: MALAISE
     Dosage: 2000 MG, 2X/DAY
     Route: 048
  12. ZINC SULFATE [Concomitant]
     Indication: MALAISE
     Dosage: 25 MG, 1X/DAY
     Route: 048

REACTIONS (2)
  - DEHYDRATION [None]
  - DIARRHOEA [None]
